FAERS Safety Report 4380110-8 (Version None)
Quarter: 2004Q2

REPORT INFORMATION
  Report Type: 
  Country: None (occurrence: None)
  Receive Date: 20040616
  Receipt Date: 20040602
  Transmission Date: 20050107
  Serious: Yes (Death)
  Sender: FDA-Public Use
  Company Number: 2004S1001604

PATIENT
  Age: 48 Year
  Sex: Female

DRUGS (11)
  1. CLOZAPINE [Suspect]
     Dosage: 700MG QD, ORAL
     Route: 048
     Dates: start: 20040511
  2. LORAZEPAM [Concomitant]
  3. DEXAMETHASONE [Concomitant]
  4. PROMETHAZINE [Concomitant]
  5. LOPERAMIDE HCL [Concomitant]
  6. CLINDAMYCIN [Concomitant]
  7. MIRTAZAPINE [Concomitant]
  8. MULTIVITAMIN [Concomitant]
  9. FERROUS FUMARATE/ASCORBIC ACID/CYANOCOBALAMIN/FOLIC ACID [Concomitant]
  10. FAMOTIDINE [Concomitant]
  11. METOPROLOL TARTRATE [Concomitant]

REACTIONS (1)
  - WHITE BLOOD CELL COUNT INCREASED [None]
